FAERS Safety Report 10429310 (Version 1)
Quarter: 2014Q3

REPORT INFORMATION
  Report Type: Spontaneous
  Country: FR (occurrence: FR)
  Receive Date: 20140904
  Receipt Date: 20140904
  Transmission Date: 20150326
  Serious: Yes (Other)
  Sender: FDA-Public Use
  Company Number: FR-ROCHE-1457316

PATIENT
  Age: 2 Year
  Sex: Female

DRUGS (1)
  1. ROACTEMRA [Suspect]
     Active Substance: TOCILIZUMAB
     Indication: JUVENILE IDIOPATHIC ARTHRITIS
     Route: 041

REACTIONS (4)
  - Rash [Unknown]
  - Drug eruption [Recovered/Resolved]
  - Face oedema [Recovered/Resolved]
  - Abasia [Recovered/Resolved]
